FAERS Safety Report 6847529-4 (Version None)
Quarter: 2010Q3

REPORT INFORMATION
  Report Type: 
  Country: None (occurrence: None)
  Receive Date: 20100716
  Receipt Date: 20100706
  Transmission Date: 20110219
  Serious: Yes (Disabling, Other)
  Sender: FDA-Public Use
  Company Number: US-PFIZER INC-2010084932

PATIENT
  Sex: Male

DRUGS (4)
  1. ANTIVERT [Suspect]
     Indication: HYPERTHYROIDISM
     Dosage: 12.5 MG, AS NEEDED
     Route: 048
     Dates: start: 19790101
  2. ANTIVERT [Suspect]
     Indication: PANIC DISORDER WITH AGORAPHOBIA
     Dosage: 25 MG, AS NEEDED
     Route: 048
  3. ATIVAN [Concomitant]
     Dosage: UNK
  4. SYNTHROID [Concomitant]
     Dosage: UNK

REACTIONS (2)
  - DRUG INEFFECTIVE [None]
  - HYPOTHYROIDISM [None]
